FAERS Safety Report 7621449-X (Version None)
Quarter: 2011Q3

REPORT INFORMATION
  Report Type: 
  Country: None (occurrence: None)
  Receive Date: 20110719
  Receipt Date: 20110613
  Transmission Date: 20111222
  Serious: No
  Sender: FDA-Public Use
  Company Number: US-BAUSCH-2011BL003903

PATIENT
  Age: 83 Year
  Sex: Female

DRUGS (1)
  1. LATANOPROST [Suspect]
     Indication: PRODUCT USED FOR UNKNOWN INDICATION
     Route: 047
     Dates: start: 20110603, end: 20110610

REACTIONS (3)
  - EYELID OEDEMA [None]
  - EYE DISCHARGE [None]
  - OCULAR HYPERAEMIA [None]
